FAERS Safety Report 6946190-8 (Version None)
Quarter: 2010Q3

REPORT INFORMATION
  Report Type: 
  Country: None (occurrence: None)
  Receive Date: 20100827
  Receipt Date: 20100819
  Transmission Date: 20110219
  Serious: Yes (Death)
  Sender: FDA-Public Use
  Company Number: US-AMGEN-QUU432702

PATIENT
  Sex: Female

DRUGS (16)
  1. NPLATE [Suspect]
     Indication: IDIOPATHIC THROMBOCYTOPENIC PURPURA
     Dates: start: 20080910, end: 20100719
  2. DANAZOL [Concomitant]
     Dates: start: 20020309
  3. AMLODIPINE [Concomitant]
  4. CALCIUM [Concomitant]
  5. VITAMIN D [Concomitant]
  6. VITAMIN B6 [Concomitant]
     Dates: start: 19990101
  7. FOLIC ACID [Concomitant]
     Dates: start: 19990101
  8. LEVOTHYROXINE [Concomitant]
  9. K-TAB [Concomitant]
  10. ARTIFICIAL TEARS [Concomitant]
  11. TAGAMET [Concomitant]
  12. PENICILLIN VK [Concomitant]
  13. PRED FORTE [Concomitant]
  14. ATROPINE OPHTHALMIC [Concomitant]
  15. REFRESH [Concomitant]
  16. PREDNISONE [Concomitant]
     Dates: start: 19990101

REACTIONS (1)
  - DEATH [None]
